FAERS Safety Report 10404471 (Version 1)
Quarter: 2014Q1

REPORT INFORMATION
  Report Type: Spontaneous
  Country: US (occurrence: None)
  Receive Date: 20140306
  Receipt Date: 20140306
  Transmission Date: 20141002
  Serious: Yes (Disabling)
  Sender: FDA-Public Use
  Company Number: 163-21880-13054458

PATIENT
  Age: 81 Year
  Sex: Female

DRUGS (9)
  1. REVLIMID (LENALIDOMIDE) (5 MILLIGRAM, CAPSULES) [Suspect]
     Indication: PLASMA CELL MYELOMA
     Dosage: 5 MG , 28 IN 28 D, PO
     Dates: start: 201208
  2. FOLIC ACID [Concomitant]
  3. GLUCOSAMINE COMPLEX (GLUCOSAMIDE) [Concomitant]
  4. IRON [Concomitant]
  5. LISINOPRIL [Concomitant]
  6. PLAQUENIL (HYDROXYCHLOROQUINE PHOSPHATE) [Concomitant]
  7. VITAMIN D (ERGOCALCIFEROL) [Concomitant]
  8. PREDNISONE [Concomitant]
  9. TUMS (CALCIUM CARBONATE) [Concomitant]

REACTIONS (3)
  - Renal failure chronic [None]
  - Back pain [None]
  - Arthralgia [None]
